FAERS Safety Report 6839987-6 (Version None)
Quarter: 2010Q3

REPORT INFORMATION
  Report Type: 
  Country: None (occurrence: None)
  Receive Date: 20100709
  Receipt Date: 20100701
  Transmission Date: 20110219
  Serious: Yes (Hospitalization)
  Sender: FDA-Public Use
  Company Number: 2008-187211-NL

PATIENT
  Age: 29 Year
  Sex: Female
  Weight: 95.709 kg

DRUGS (4)
  1. NUVARING [Suspect]
     Indication: MENORRHAGIA
     Dosage: 1 DF; Q3W
     Dates: start: 20070801, end: 20070901
  2. METFORMIN HCL [Concomitant]
  3. ALTACE [Concomitant]
  4. NAPROXIN [Concomitant]

REACTIONS (1)
  - DEEP VEIN THROMBOSIS [None]
